FAERS Safety Report 5496736-4 (Version None)
Quarter: 2007Q4

REPORT INFORMATION
  Report Type: 
  Country: None (occurrence: None)
  Receive Date: 20071025
  Receipt Date: 20070807
  Transmission Date: 20080405
  Serious: No
  Sender: FDA-Public Use
  Company Number: A0668680A

PATIENT
  Age: 56 Year
  Sex: Female

DRUGS (5)
  1. ADVAIR DISKUS 100/50 [Suspect]
     Indication: EMPHYSEMA
     Dosage: 1PUFF TWICE PER DAY
     Route: 055
  2. LIPITOR [Concomitant]
  3. AMITRIPTYLINE HCL [Concomitant]
  4. ESTRADIOL [Concomitant]
  5. ACTONEL [Concomitant]

REACTIONS (2)
  - MYOPIA [None]
  - VISION BLURRED [None]
